FAERS Safety Report 25278265 (Version 1)
Quarter: 2025Q2

REPORT INFORMATION
  Report Type: Spontaneous
  Country: US (occurrence: None)
  Receive Date: 20250506
  Receipt Date: 20250506
  Transmission Date: 20250716
  Serious: Yes (Life-Threatening, Disabling)
  Sender: FDA-CTU
  Company Number: None

PATIENT
  Age: 21 Year
  Sex: Male
  Weight: 72.45 kg

DRUGS (1)
  1. FINASTERIDE\MINOXIDIL [Suspect]
     Active Substance: FINASTERIDE\MINOXIDIL
     Indication: Alopecia
     Dates: start: 20250326, end: 20250326

REACTIONS (12)
  - Panic attack [None]
  - Insomnia [None]
  - Penile size reduced [None]
  - General physical condition abnormal [None]
  - Emotional disorder [None]
  - Derealisation [None]
  - Anxiety [None]
  - Feeling abnormal [None]
  - Anhedonia [None]
  - Impaired work ability [None]
  - Suicidal ideation [None]
  - Quality of life decreased [None]

NARRATIVE: CASE EVENT DATE: 20250328
